FAERS Safety Report 11371533 (Version 1)
Quarter: 2015Q3

REPORT INFORMATION
  Report Type: Spontaneous
  Country: KR (occurrence: KR)
  Receive Date: 20150812
  Receipt Date: 20150812
  Transmission Date: 20151125
  Serious: Yes (Hospitalization)
  Sender: FDA-Public Use
  Company Number: PHHY2015KR094126

PATIENT
  Age: 61 Year
  Sex: Female

DRUGS (2)
  1. FLUORESCEINE 10% FAURE [Suspect]
     Active Substance: FLUORESCEIN SODIUM
     Indication: DIAGNOSTIC PROCEDURE
     Dosage: 500 MG/ML, UNK
     Route: 042
  2. PREDNISOLONE. [Concomitant]
     Active Substance: PREDNISOLONE
     Indication: PULMONARY SARCOIDOSIS
     Route: 065

REACTIONS (13)
  - Anaphylactic reaction [Recovered/Resolved]
  - Syncope [Recovered/Resolved]
  - Dysphonia [Recovered/Resolved]
  - Nausea [Recovered/Resolved]
  - Vomiting [Recovered/Resolved]
  - Chest discomfort [Recovered/Resolved]
  - Pruritus [Recovered/Resolved]
  - Somnolence [Recovered/Resolved]
  - Rash [Recovered/Resolved]
  - Wheezing [Recovered/Resolved]
  - Angioedema [Recovered/Resolved]
  - Urticaria [Recovered/Resolved]
  - Presyncope [Recovered/Resolved]
